FAERS Safety Report 7090378-5 (Version None)
Quarter: 2010Q4

REPORT INFORMATION
  Report Type: 
  Country: None (occurrence: None)
  Receive Date: 20101109
  Receipt Date: 20101027
  Transmission Date: 20110411
  Serious: Yes (Other)
  Sender: FDA-Public Use
  Company Number: PHHY2010TH62606

PATIENT
  Age: 50 Year
  Sex: Female

DRUGS (3)
  1. ZOMETA [Suspect]
     Indication: METASTASES TO BONE
     Dosage: 4 MG, QMO
     Route: 042
     Dates: start: 20080325, end: 20100921
  2. FEMARA [Suspect]
     Dosage: 2.5 MG DAILY
     Dates: start: 20010123
  3. BONEFOS [Suspect]
     Dosage: 400 MG, BID
     Dates: start: 20030107

REACTIONS (7)
  - BONE DISORDER [None]
  - DENTAL CARIES [None]
  - ERYTHEMA [None]
  - OSTEONECROSIS OF JAW [None]
  - PAIN [None]
  - SWELLING [None]
  - TOOTH LOSS [None]
